FAERS Safety Report 13094453 (Version 1)
Quarter: 2017Q1

REPORT INFORMATION
  Report Type: Spontaneous
  Country: IT (occurrence: IT)
  Receive Date: 20170106
  Receipt Date: 20170106
  Transmission Date: 20170428
  Serious: Yes (Hospitalization)
  Sender: FDA-Public Use
  Company Number: IT-MYLANLABS-2016M1054845

PATIENT

DRUGS (3)
  1. SERTRALINE [Concomitant]
     Active Substance: SERTRALINE HYDROCHLORIDE
     Indication: DEPRESSION
     Dosage: 50 MG, UNK
     Route: 048
     Dates: start: 20110101, end: 20161129
  2. AUGMENTIN [Suspect]
     Active Substance: AMOXICILLIN\CLAVULANATE POTASSIUM
     Indication: APICAL GRANULOMA
     Dosage: 2 DF, QD
     Route: 048
     Dates: start: 20160520, end: 20160522
  3. BRUFEN 600 MG GRANULATO EFFERVESCENTE [Suspect]
     Active Substance: IBUPROFEN
     Indication: PAIN
     Dosage: 1200 MG, QD
     Route: 048
     Dates: start: 20160520, end: 20160522

REACTIONS (4)
  - Lacrimation increased [Recovered/Resolved]
  - Eyelid oedema [Recovered/Resolved]
  - Rash generalised [Recovered/Resolved]
  - Eye irritation [Recovered/Resolved]

NARRATIVE: CASE EVENT DATE: 20160522
